FAERS Safety Report 17820888 (Version 4)
Quarter: 2020Q4

REPORT INFORMATION
  Report Type: Spontaneous
  Country: PL (occurrence: PL)
  Receive Date: 20200525
  Receipt Date: 20201017
  Transmission Date: 20210113
  Serious: Yes (Death, Other)
  Sender: FDA-Public Use
  Company Number: PL-ACCORD-182765

PATIENT
  Age: 9 Year
  Sex: Male

DRUGS (11)
  1. CARBOPLATIN. [Suspect]
     Active Substance: CARBOPLATIN
     Indication: RHABDOMYOSARCOMA
  2. ETOPOSIDE. [Suspect]
     Active Substance: ETOPOSIDE
     Indication: RHABDOMYOSARCOMA
     Dosage: ALSO RECEIVED ORAL P.O 2000 MG/M2
     Route: 042
  3. TROFOSFAMIDE [Suspect]
     Active Substance: TROFOSFAMIDE
     Indication: RHABDOMYOSARCOMA
  4. IDARUBICIN [Suspect]
     Active Substance: IDARUBICIN
     Indication: RHABDOMYOSARCOMA
  5. DACTINOMYCIN [Suspect]
     Active Substance: DACTINOMYCIN
     Indication: ALVEOLAR RHABDOMYOSARCOMA
  6. VINCRISTINE [Suspect]
     Active Substance: VINCRISTINE
     Indication: RHABDOMYOSARCOMA
  7. IRINOTECAN [Suspect]
     Active Substance: IRINOTECAN
     Indication: RHABDOMYOSARCOMA
  8. IFOSFAMIDE. [Suspect]
     Active Substance: IFOSFAMIDE
     Indication: RHABDOMYOSARCOMA
  9. TOPOTECAN [Suspect]
     Active Substance: TOPOTECAN HYDROCHLORIDE
     Indication: RHABDOMYOSARCOMA
  10. DOXORUBICIN [Suspect]
     Active Substance: DOXORUBICIN
     Indication: RHABDOMYOSARCOMA
  11. CYCLOPHOSPHAMIDE/CYCLOPHOSPHAMIDE MONOHYDRATE [Suspect]
     Active Substance: CYCLOPHOSPHAMIDE
     Indication: RHABDOMYOSARCOMA

REACTIONS (2)
  - Off label use [Unknown]
  - Myelodysplastic syndrome [Not Recovered/Not Resolved]

NARRATIVE: CASE EVENT DATE: 200911
